FAERS Safety Report 24642252 (Version 1)
Quarter: 2024Q4

REPORT INFORMATION
  Report Type: Spontaneous
  Country: IN (occurrence: IN)
  Receive Date: 20241120
  Receipt Date: 20241120
  Transmission Date: 20250115
  Serious: Yes (Hospitalization, Other)
  Sender: GLAND PHARMA LTD
  Company Number: IN-GLANDPHARMA-IN-2024GLNLIT01004

PATIENT
  Age: 25 Year
  Sex: Female

DRUGS (19)
  1. OCTREOTIDE ACETATE [Suspect]
     Active Substance: OCTREOTIDE ACETATE
     Indication: Carcinoid syndrome
     Route: 065
  2. OCTREOTIDE ACETATE [Suspect]
     Active Substance: OCTREOTIDE ACETATE
     Indication: Mean arterial pressure increased
     Route: 065
  3. CAPECITABINE [Concomitant]
     Active Substance: CAPECITABINE
     Indication: Carcinoid syndrome
     Route: 065
  4. TEMOZOLOMIDE [Concomitant]
     Active Substance: TEMOZOLOMIDE
     Indication: Carcinoid syndrome
     Route: 065
  5. MIDAZOLAM [Concomitant]
     Active Substance: MIDAZOLAM
     Route: 065
  6. FENTANYL [Concomitant]
     Active Substance: FENTANYL
     Route: 065
  7. PROPOFOL [Concomitant]
     Active Substance: PROPOFOL
     Indication: Induction of anaesthesia
     Route: 065
  8. VECURONIUM [Concomitant]
     Active Substance: VECURONIUM BROMIDE
     Indication: Product used for unknown indication
     Route: 065
  9. LIGNOCAINE [GLUCOSE;LIDOCAINE HYDROCHLORIDE] [Concomitant]
     Route: 042
  10. MORPHINE [Concomitant]
     Active Substance: MORPHINE
     Dosage: 100 UG.KG
     Route: 065
  11. SEVOFLURANE [Concomitant]
     Active Substance: SEVOFLURANE
     Indication: Anaesthesia
     Route: 065
  12. PHENYLEPHRINE [Concomitant]
     Active Substance: PHENYLEPHRINE
     Dosage: 20 UG BOLUSES UP TO 80 UG
     Route: 065
  13. PHENYLEPHRINE [Concomitant]
     Active Substance: PHENYLEPHRINE
     Dosage: 0.05 UG.KG. MIN TO 0.2 UG.KG
     Route: 065
  14. VASOPRESSIN [Concomitant]
     Active Substance: VASOPRESSIN
     Indication: Mean arterial pressure
     Dosage: 2 IU.HR
     Route: 065
  15. EPINEPHRINE [Concomitant]
     Active Substance: EPINEPHRINE
     Dosage: 0.05 UG.KG.MIN TO 0.3 UG.KG.MIN
     Route: 065
  16. EPINEPHRINE [Concomitant]
     Active Substance: EPINEPHRINE
     Dosage: ADRENALINE WAS ADMINISTERED IN ALIQUOTS
     Route: 065
  17. EPINEPHRINE [Concomitant]
     Active Substance: EPINEPHRINE
     Dosage: TAPERED SLOWLY
     Route: 065
  18. NOREPINEPHRINE [Concomitant]
     Active Substance: NOREPINEPHRINE\NOREPINEPHRINE BITARTRATE
     Indication: Hypotension
     Dosage: 0.2 TO 0.3 UG.KG.MIN
     Route: 065
  19. NOREPINEPHRINE [Concomitant]
     Active Substance: NOREPINEPHRINE\NOREPINEPHRINE BITARTRATE
     Dosage: TAPERED SLOWLY
     Route: 065

REACTIONS (3)
  - Diabetic ketoacidosis [Unknown]
  - Diabetes mellitus [Unknown]
  - Drug ineffective for unapproved indication [Unknown]
